FAERS Safety Report 10084278 (Version 4)
Quarter: 2014Q2

REPORT INFORMATION
  Report Type: Spontaneous
  Country: DE (occurrence: DE)
  Receive Date: 20140417
  Receipt Date: 20140523
  Transmission Date: 20141212
  Serious: Yes (Other)
  Sender: FDA-Public Use
  Company Number: DE-PFIZER INC-2014036506

PATIENT
  Age: 83 Year
  Sex: Female

DRUGS (2)
  1. LATANOPROST PFIZER [Suspect]
     Indication: GLAUCOMA
     Dosage: UNK
     Route: 047
     Dates: start: 201402
  2. LATANOPROST PFIZER [Suspect]
     Dosage: EVERY 2-3 DAYS
     Route: 047

REACTIONS (4)
  - Visual acuity reduced [Recovered/Resolved]
  - Eye discharge [Recovered/Resolved]
  - Ocular hyperaemia [Recovered/Resolved]
  - Off label use [Unknown]
